FAERS Safety Report 9057647 (Version 1)
Quarter: 2013Q1

REPORT INFORMATION
  Report Type: Spontaneous
  Country: US (occurrence: None)
  Receive Date: 20130204
  Receipt Date: 20130204
  Transmission Date: 20140127
  Serious: Yes (Hospitalization)
  Sender: FDA-Public Use
  Company Number: None

PATIENT
  Age: 45 Year
  Sex: Male
  Weight: 80 kg

DRUGS (13)
  1. COUMADIN [Suspect]
     Indication: PULMONARY EMBOLISM
     Dosage: ALTERNATING 5MG AND 7.5MG PO CHRONIC
  2. REGORAFENIB [Suspect]
     Indication: COLORECTAL CANCER METASTATIC
     Route: 048
     Dates: start: 20121130
  3. CLONAZEPAM [Concomitant]
  4. DEXAMETHASONE [Concomitant]
  5. LOMOTIL [Concomitant]
  6. MIRTAZAPINE [Concomitant]
  7. OXYCONTIN [Concomitant]
  8. COMPAZINE [Concomitant]
  9. REGONAFENIB [Concomitant]
  10. ZOLOFT [Concomitant]
  11. MVI [Concomitant]
  12. ZOFRAN [Concomitant]
  13. SENNA [Concomitant]

REACTIONS (2)
  - Rectal haemorrhage [None]
  - International normalised ratio increased [None]
